FAERS Safety Report 8572569-7 (Version None)
Quarter: 2012Q3

REPORT INFORMATION
  Report Type: 
  Country: None (occurrence: None)
  Receive Date: 20120806
  Receipt Date: 20120606
  Transmission Date: 20120928
  Serious: Yes (Death)
  Sender: FDA-Public Use
  Company Number: FR-ROCHE-1095795

PATIENT
  Sex: Male

DRUGS (10)
  1. ERBITUX [Suspect]
     Dates: start: 20100615, end: 20100908
  2. AVASTIN [Suspect]
     Indication: COLON CANCER
     Dates: start: 20090723, end: 20100602
  3. FLUOROURACIL [Concomitant]
     Dosage: AS PART OF FOLFOX REGIMEN
     Dates: start: 20100615, end: 20100908
  4. LEUCOVORIN CALCIUM [Concomitant]
     Dosage: AS PART OF FOLFIRI REGIMEN
     Dates: start: 20090723, end: 20100602
  5. OXALIPLATIN [Concomitant]
     Dosage: AS PART OF FOLFOX REGIMEN
     Dates: start: 20100615, end: 20100908
  6. VECTIBIX [Suspect]
     Dates: start: 20101123, end: 20101217
  7. IRINOTECAN HCL [Concomitant]
     Dosage: AS PART OF FOLFIRI REGIMEN
     Dates: start: 20090723, end: 20100602
  8. FLUOROURACIL [Concomitant]
     Dosage: AS PART OF FOLFIRI REGIMEN
     Dates: start: 20090723, end: 20100602
  9. LEUCOVORIN CALCIUM [Concomitant]
     Dosage: AS PART OF FOLFOX REGIMEN
     Dates: start: 20100615, end: 20100908
  10. IRINOTECAN HYDROCHLORIDE [Concomitant]
     Dates: start: 20100921, end: 20101116

REACTIONS (2)
  - EPISTAXIS [None]
  - DISEASE PROGRESSION [None]
